FAERS Safety Report 22007922 (Version 1)
Quarter: 2023Q1

REPORT INFORMATION
  Report Type: Spontaneous
  Country: DE (occurrence: DE)
  Receive Date: 20230218
  Receipt Date: 20230218
  Transmission Date: 20230418
  Serious: Yes (Congenital Anomaly)
  Sender: FDA-Public Use
  Company Number: None

PATIENT
  Sex: Male
  Weight: 2.4 kg

DRUGS (5)
  1. SERTRALINE [Suspect]
     Active Substance: SERTRALINE HYDROCHLORIDE
     Dosage: 50 MG/D
     Route: 064
     Dates: start: 20210819, end: 20220414
  2. VITAMIN D [Concomitant]
     Active Substance: VITAMIN D NOS
     Dosage: 1000 IE/D
     Route: 064
     Dates: start: 20210819, end: 20220414
  3. TOZINAMERAN [Concomitant]
     Active Substance: TOZINAMERAN
     Route: 064
     Dates: start: 20211223, end: 20211223
  4. BOOSTRIX [Concomitant]
     Active Substance: TETANUS TOXOID, REDUCED DIPHTHERIA TOXOID AND ACELLULAR PERTUSSIS VACCINE, ADSORBED ANTIGENS
     Route: 064
     Dates: start: 20220412, end: 20220412
  5. DIMETHYL FUMARATE [Concomitant]
     Active Substance: DIMETHYL FUMARATE
     Dosage: 480 (MG/D (2 X 240 MG/D)) 2 SEPARATED DOSES
     Route: 064

REACTIONS (6)
  - Congenital supraventricular tachycardia [Unknown]
  - Mitral valve incompetence [Recovering/Resolving]
  - Patent ductus arteriosus [Recovered/Resolved]
  - Congenital coronary artery malformation [Unknown]
  - Foetal exposure during pregnancy [Unknown]
  - Atrial septal defect [Not Recovered/Not Resolved]

NARRATIVE: CASE EVENT DATE: 20220401
